FAERS Safety Report 9966672 (Version 2)
Quarter: 2014Q1

REPORT INFORMATION
  Report Type: Report from Study
  Country: US (occurrence: US)
  Receive Date: 20140305
  Receipt Date: 20140305
  Transmission Date: 20141002
  Serious: Yes (Hospitalization, Other)
  Sender: FDA-Public Use
  Company Number: US-ABBVIE-13P-163-1106633-00

PATIENT
  Age: 30 Year
  Sex: Male
  Weight: 72 kg

DRUGS (5)
  1. HUMIRA [Suspect]
     Indication: PSORIASIS
     Dates: start: 20130430, end: 20130430
  2. HUMIRA [Suspect]
     Dates: start: 20130507, end: 20130603
  3. CITALOPRAM [Concomitant]
     Indication: DEPRESSION
  4. CITALOPRAM [Concomitant]
     Indication: ANXIETY
  5. TOPICAL STEROIDS [Concomitant]
     Indication: PRODUCT USED FOR UNKNOWN INDICATION
     Route: 061

REACTIONS (1)
  - Thrombocytopenia [Not Recovered/Not Resolved]
